FAERS Safety Report 23122953 (Version 2)
Quarter: 2023Q4

REPORT INFORMATION
  Report Type: Spontaneous
  Country: LB (occurrence: None)
  Receive Date: 20231030
  Receipt Date: 20231102
  Transmission Date: 20240109
  Serious: Yes (Other)
  Sender: FDA-Public Use
  Company Number: LB-ROCHE-3446103

PATIENT
  Sex: Female

DRUGS (11)
  1. RITUXIMAB [Suspect]
     Active Substance: RITUXIMAB
     Indication: Diffuse large B-cell lymphoma
     Dosage: C2 20/JUN/2023, C3 04/JUL/2023 C4 18/JUL/2023.
     Route: 065
     Dates: start: 20230531, end: 20230718
  2. RITUXIMAB [Suspect]
     Active Substance: RITUXIMAB
     Dosage: C2 03/OCT/2023
     Route: 065
     Dates: start: 20230912, end: 20231024
  3. DOXORUBICIN [Suspect]
     Active Substance: DOXORUBICIN
     Indication: Diffuse large B-cell lymphoma
     Dosage: C2 20/JUN/2023, C3 04/JUL/2023 C4 18/JUL/2023
     Route: 065
     Dates: start: 20230531, end: 20230718
  4. CYCLOPHOSPHAMIDE [Suspect]
     Active Substance: CYCLOPHOSPHAMIDE
     Indication: Diffuse large B-cell lymphoma
     Dosage: C2 20/JUN/2023, C3 04/JUL/2023 C4 18/JUL/2023
     Route: 065
     Dates: start: 20230531, end: 20230718
  5. VINDESINE [Suspect]
     Active Substance: VINDESINE
     Indication: Diffuse large B-cell lymphoma
     Dosage: C2 20/JUN/2023, C3 04/JUL/2023 C4 18/JUL/2023
     Route: 065
     Dates: start: 20230531, end: 20230718
  6. BLEOMYCIN [Suspect]
     Active Substance: BLEOMYCIN SULFATE
     Indication: Diffuse large B-cell lymphoma
     Dosage: C2 20/JUN/2023, C3 04/JUL/2023 C4 18/JUL/2023
     Route: 065
     Dates: start: 20230531, end: 20230718
  7. PREDNISONE [Suspect]
     Active Substance: PREDNISONE
     Indication: Diffuse large B-cell lymphoma
     Dosage: C2 20/JUN/2023, C3 04/JUL/2023 C4 18/JUL/2023
     Route: 065
     Dates: start: 20230531, end: 20230718
  8. METHOTREXATE [Suspect]
     Active Substance: METHOTREXATE
     Indication: Diffuse large B-cell lymphoma
     Dosage: C2 23/AUG/2023
     Route: 037
     Dates: start: 20230809, end: 20230823
  9. DEXAMETHASONE [Suspect]
     Active Substance: DEXAMETHASONE
     Indication: Diffuse large B-cell lymphoma
     Dosage: C2 03/OCT/2023
     Route: 065
     Dates: start: 20230912, end: 20231024
  10. CYTARABINE [Suspect]
     Active Substance: CYTARABINE
     Indication: Diffuse large B-cell lymphoma
     Dosage: C2 03/OCT/2023
     Route: 065
     Dates: start: 20230912, end: 20231024
  11. CISPLATIN [Suspect]
     Active Substance: CISPLATIN
     Indication: Diffuse large B-cell lymphoma
     Dosage: C2 03/OCT/2023
     Route: 065
     Dates: start: 20230912, end: 20231024

REACTIONS (1)
  - Disease progression [Unknown]
